FAERS Safety Report 4699099-7 (Version None)
Quarter: 2005Q2

REPORT INFORMATION
  Report Type: 
  Country: None (occurrence: None)
  Receive Date: 20050622
  Receipt Date: 20050622
  Transmission Date: 20051028
  Serious: Yes (Other)
  Sender: FDA-Public Use
  Company Number: None

PATIENT
  Age: 48 Year
  Sex: Female
  Weight: 91.173 kg

DRUGS (1)
  1. CLIMARA [Suspect]
     Indication: MENOPAUSE
     Dosage: WEEKLY
     Dates: start: 20050301

REACTIONS (2)
  - APPLICATION SITE PRURITUS [None]
  - PHARMACEUTICAL PRODUCT COMPLAINT [None]
